FAERS Safety Report 14043077 (Version 2)
Quarter: 2017Q4

REPORT INFORMATION
  Report Type: Spontaneous
  Country: US (occurrence: US)
  Receive Date: 20171004
  Receipt Date: 20171218
  Transmission Date: 20180321
  Serious: No
  Sender: FDA-Public Use
  Company Number: US-PFIZER INC-2017253613

PATIENT
  Age: 43 Year
  Sex: Female

DRUGS (6)
  1. DOCETAXEL. [Suspect]
     Active Substance: DOCETAXEL
     Indication: CHEMOTHERAPY
     Dosage: 142 MG, EVERY 3 WEEKS, FOUR CYCLES
     Dates: start: 20151013
  2. DOCETAXEL. [Suspect]
     Active Substance: DOCETAXEL
     Dosage: 140 MG, EVERY 3 WEEKS, FOUR CYCLES
     Dates: end: 20151215
  3. CYTOXAN [Concomitant]
     Active Substance: CYCLOPHOSPHAMIDE
     Indication: CHEMOTHERAPY
     Dosage: UNK, EVERY 3 WEEKS, FOUR CYCLES
     Dates: start: 20151013, end: 20151215
  4. DOCETAXEL. [Suspect]
     Active Substance: DOCETAXEL
     Indication: BREAST CANCER FEMALE
     Dosage: 143 MG, EVERY 3 WEEKS, FOUR CYCLES
  5. NEOSAR [Concomitant]
     Active Substance: CYCLOPHOSPHAMIDE
     Indication: CHEMOTHERAPY
     Dosage: UNK
  6. TAXOTERE [Concomitant]
     Active Substance: DOCETAXEL
     Dosage: UNK

REACTIONS (5)
  - Alopecia [Not Recovered/Not Resolved]
  - Hair texture abnormal [Not Recovered/Not Resolved]
  - Hair colour changes [Not Recovered/Not Resolved]
  - Hair disorder [Not Recovered/Not Resolved]
  - Madarosis [Not Recovered/Not Resolved]

NARRATIVE: CASE EVENT DATE: 201510
